FAERS Safety Report 25838102 (Version 1)
Quarter: 2025Q3

REPORT INFORMATION
  Report Type: Spontaneous
  Country: US (occurrence: US)
  Receive Date: 20250923
  Receipt Date: 20250923
  Transmission Date: 20251020
  Serious: No
  Sender: ANI
  Company Number: US-ANIPHARMA-2025-US-028319

PATIENT
  Age: 36 Year
  Sex: Male

DRUGS (10)
  1. CORTICOTROPIN [Suspect]
     Active Substance: CORTICOTROPIN
     Indication: Dermatitis atopic
     Route: 058
  2. EYE DROPS A/C [Concomitant]
  3. CEQUA CEQUA 0.09% OPTH SOL [Concomitant]
  4. CYCLOMYDRIL [Concomitant]
     Active Substance: CYCLOPENTOLATE HYDROCHLORIDE\PHENYLEPHRINE HYDROCHLORIDE
  5. WELLBUTRIN XL [Concomitant]
     Active Substance: BUPROPION HYDROCHLORIDE
  6. CROMOLYN SODIUM [Concomitant]
     Active Substance: CROMOLYN SODIUM
  7. MOXIFLOXACIN HYDROCHLORID [Concomitant]
  8. LOSARTAN POTASSIUM/HYDROC [Concomitant]
  9. ATROPINE SULFATE [Concomitant]
     Active Substance: ATROPINE SULFATE
  10. LATUDA LATUDA 40 MG TABLET [Concomitant]

REACTIONS (3)
  - Product dose omission issue [Recovered/Resolved]
  - Malaise [Recovering/Resolving]
  - Nasopharyngitis [Recovering/Resolving]

NARRATIVE: CASE EVENT DATE: 20250501
